FAERS Safety Report 7914843-0 (Version None)
Quarter: 2011Q4

REPORT INFORMATION
  Report Type: 
  Country: None (occurrence: None)
  Receive Date: 20111115
  Receipt Date: 20111102
  Transmission Date: 20120403
  Serious: Yes (Other)
  Sender: FDA-Public Use
  Company Number: JP-ELI_LILLY_AND_COMPANY-JP201111001601

PATIENT
  Age: 78 Year
  Sex: Male

DRUGS (2)
  1. CARBOPLATIN [Concomitant]
     Indication: NON-SMALL CELL LUNG CANCER RECURRENT
  2. ALIMTA [Suspect]
     Indication: NON-SMALL CELL LUNG CANCER RECURRENT
     Route: 042

REACTIONS (2)
  - BILIARY TRACT DISORDER [None]
  - LUNG DISORDER [None]
